FAERS Safety Report 12594126 (Version 1)
Quarter: 2016Q3

REPORT INFORMATION
  Report Type: Spontaneous
  Country: US (occurrence: US)
  Receive Date: 20160726
  Receipt Date: 20160726
  Transmission Date: 20161109
  Serious: Yes (Other)
  Sender: FDA-Public Use
  Company Number: US-AUROBINDO-AUR-APL-2016-09230

PATIENT
  Age: 62 Year
  Sex: Female
  Weight: 131.5 kg

DRUGS (4)
  1. VENLAFAXINE HYDROCHLORIDE EXTENDED-RELEASE CAPSULES 75MG [Suspect]
     Active Substance: VENLAFAXINE HYDROCHLORIDE
     Indication: DEPRESSION
     Dosage: 75 MG, ONCE A DAY
     Route: 048
     Dates: end: 20160626
  2. SIMVASTATIN. [Concomitant]
     Active Substance: SIMVASTATIN
     Indication: BLOOD CHOLESTEROL
     Dosage: 20 MG, ONCE A DAY, TAKEN FOR ABOUT SIX MONTHS
     Route: 065
  3. OXYCODONE [Suspect]
     Active Substance: OXYCODONE
     Indication: TOOTH ABSCESS
     Dosage: 5-325 ONE TABLET BY MOUTH EVERY 4-6 HOURS AS NEEDED
     Dates: start: 20160513
  4. HYDROCODONE [Suspect]
     Active Substance: HYDROCODONE
     Indication: PRODUCT USED FOR UNKNOWN INDICATION
     Route: 065

REACTIONS (1)
  - Serotonin syndrome [Recovered/Resolved]

NARRATIVE: CASE EVENT DATE: 20160513
